FAERS Safety Report 5700974-2 (Version None)
Quarter: 2008Q2

REPORT INFORMATION
  Report Type: 
  Country: None (occurrence: None)
  Receive Date: 20080410
  Receipt Date: 20080403
  Transmission Date: 20081010
  Serious: Yes (Other)
  Sender: FDA-Public Use
  Company Number: GB-ROCHE-556868

PATIENT
  Sex: Male

DRUGS (3)
  1. XELODA [Suspect]
     Indication: GASTRIC CANCER
     Route: 065
     Dates: start: 20071219
  2. EPIRUBICIN [Concomitant]
     Indication: GASTRIC CANCER
     Dates: start: 20071219
  3. CISPLATIN [Concomitant]
     Indication: GASTRIC CANCER
     Dates: start: 20071219

REACTIONS (1)
  - PERIPHERAL ISCHAEMIA [None]
